FAERS Safety Report 24144146 (Version 1)
Quarter: 2024Q3

REPORT INFORMATION
  Report Type: Report from Study
  Country: US (occurrence: US)
  Receive Date: 20240727
  Receipt Date: 20240727
  Transmission Date: 20241017
  Serious: Yes (Other)
  Sender: HLS THERAPEUTICS
  Company Number: US-HLS-202400018

PATIENT
  Age: 68 Year
  Sex: Male

DRUGS (2)
  1. CLOZARIL [Suspect]
     Active Substance: CLOZAPINE
     Indication: Product used for unknown indication
     Dosage: CLOZARIL 100MG DS 30 QTY 90 TAKE 3 TABLETS BY MOUTH EVERY DAY.
     Route: 065
  2. CLOZARIL [Suspect]
     Active Substance: CLOZAPINE
     Indication: Product used for unknown indication
     Dosage: CLOZARIL 100MG TAB X 4 PO QD (30 DAY SUPPLY 120 QUANTITY)
     Route: 048

REACTIONS (6)
  - Hallucinations, mixed [Unknown]
  - Feeling jittery [Unknown]
  - Eating disorder [Unknown]
  - Insomnia [Unknown]
  - Product use issue [Not Recovered/Not Resolved]
  - Cough [Unknown]
